FAERS Safety Report 14604827 (Version 1)
Quarter: 2018Q1

REPORT INFORMATION
  Report Type: Spontaneous
  Country: CN (occurrence: CN)
  Receive Date: 20180306
  Receipt Date: 20180306
  Transmission Date: 20180509
  Serious: Yes (Life-Threatening, Other)
  Sender: FDA-Public Use
  Company Number: CN-PFIZER INC-2018089655

PATIENT
  Age: 49 Year
  Sex: Female
  Weight: 61.1 kg

DRUGS (1)
  1. ZITHROMAX [Suspect]
     Active Substance: AZITHROMYCIN DIHYDRATE
     Indication: INFECTION
     Dosage: 0.5 G, 1X/DAY
     Route: 041
     Dates: start: 20171230, end: 20180103

REACTIONS (10)
  - Flushing [Unknown]
  - Cyanosis [Unknown]
  - Dyspnoea [Unknown]
  - Blood pressure decreased [Recovering/Resolving]
  - Skin discolouration [Unknown]
  - Anaphylactic shock [Recovering/Resolving]
  - Unresponsive to stimuli [Unknown]
  - Hypoaesthesia [Unknown]
  - Oxygen saturation decreased [Recovering/Resolving]
  - Heart rate increased [Recovering/Resolving]

NARRATIVE: CASE EVENT DATE: 20180103
